FAERS Safety Report 13426628 (Version 2)
Quarter: 2017Q2

REPORT INFORMATION
  Report Type: Report from Study
  Country: US (occurrence: US)
  Receive Date: 20170411
  Receipt Date: 20170425
  Transmission Date: 20170830
  Serious: Yes (Other)
  Sender: FDA-Public Use
  Company Number: US-ROCHE-1917372

PATIENT
  Age: 50 Year
  Sex: Female
  Weight: 106.24 kg

DRUGS (20)
  1. LINZESS [Concomitant]
     Active Substance: LINACLOTIDE
     Route: 065
  2. PREDNISONE. [Concomitant]
     Active Substance: PREDNISONE
     Dosage: 30MG FOR 3DAYS; 20MG FOR 3 DAYS; 10MG FOR 3 DAYS
     Route: 048
     Dates: start: 20170404
  3. BENADRYL [Concomitant]
     Active Substance: DIPHENHYDRAMINE HYDROCHLORIDE
     Route: 065
  4. DEPO-MEDROL [Concomitant]
     Active Substance: METHYLPREDNISOLONE ACETATE
     Route: 030
  5. FLONASE (UNITED STATES) [Concomitant]
  6. HYDROXYZINE [Concomitant]
     Active Substance: HYDROXYZINE HYDROCHLORIDE
     Indication: CHRONIC SPONTANEOUS URTICARIA
  7. NEXIUM [Concomitant]
     Active Substance: ESOMEPRAZOLE MAGNESIUM
     Route: 048
  8. HYDROXYZINE HYDROCHLORIDE. [Concomitant]
     Active Substance: HYDROXYZINE HYDROCHLORIDE
     Route: 048
  9. CLARITIN (UNITED STATES) [Concomitant]
     Indication: CHRONIC SPONTANEOUS URTICARIA
  10. MIRALAX [Concomitant]
     Active Substance: POLYETHYLENE GLYCOL 3350
  11. AMBIEN [Concomitant]
     Active Substance: ZOLPIDEM TARTRATE
     Route: 048
  12. PREDNISONE. [Concomitant]
     Active Substance: PREDNISONE
     Route: 048
  13. SOLU-MEDROL [Concomitant]
     Active Substance: METHYLPREDNISOLONE SODIUM SUCCINATE
     Route: 058
  14. RANITIDINE HYDROCHLORIDE. [Concomitant]
     Active Substance: RANITIDINE HYDROCHLORIDE
     Route: 048
  15. EPINEPHRINE. [Concomitant]
     Active Substance: EPINEPHRINE
     Route: 058
  16. XOLAIR [Suspect]
     Active Substance: OMALIZUMAB
     Indication: IDIOPATHIC URTICARIA
     Route: 058
     Dates: start: 20170307, end: 20170404
  17. SYMBICORT [Concomitant]
     Active Substance: BUDESONIDE\FORMOTEROL FUMARATE DIHYDRATE
  18. METOPROLOL. [Concomitant]
     Active Substance: METOPROLOL
     Route: 065
  19. DUONEB [Concomitant]
     Active Substance: ALBUTEROL SULFATE\IPRATROPIUM BROMIDE
     Dosage: 2.5 MG-0.5 MG/3ML
     Route: 065
  20. DYAZIDE [Concomitant]
     Active Substance: HYDROCHLOROTHIAZIDE\TRIAMTERENE
     Dosage: 25 MG-37.5 MG
     Route: 065

REACTIONS (1)
  - Anaphylactic reaction [Recovered/Resolved with Sequelae]

NARRATIVE: CASE EVENT DATE: 20170404
